FAERS Safety Report 6986227-3 (Version None)
Quarter: 2010Q3

REPORT INFORMATION
  Report Type: 
  Country: None (occurrence: None)
  Receive Date: 20100915
  Receipt Date: 20090728
  Transmission Date: 20110219
  Serious: No
  Sender: FDA-Public Use
  Company Number: US-WYE-H09770209

PATIENT
  Sex: Female
  Weight: 59.02 kg

DRUGS (14)
  1. PRISTIQ [Suspect]
     Indication: DEPRESSION
     Route: 048
     Dates: start: 20090510, end: 20090527
  2. LIPITOR [Concomitant]
  3. ZESTRIL [Concomitant]
  4. ACETYLSALICYLIC ACID [Concomitant]
  5. LEVOXYL [Concomitant]
  6. CYANOCOBALAMIN [Concomitant]
  7. ZOLOFT [Concomitant]
  8. ATROVENT [Concomitant]
  9. ALBUTEROL [Concomitant]
  10. AMBIEN [Concomitant]
  11. PROTONIX [Concomitant]
  12. FLONASE [Concomitant]
  13. MAXZIDE [Concomitant]
  14. ESTRADIOL [Concomitant]

REACTIONS (1)
  - EPISTAXIS [None]
